FAERS Safety Report 20845542 (Version 1)
Quarter: 2022Q2

REPORT INFORMATION
  Report Type: Spontaneous
  Country: US (occurrence: None)
  Receive Date: 20220518
  Receipt Date: 20220518
  Transmission Date: 20220721
  Serious: Yes (Hospitalization)
  Sender: FDA-Public Use
  Company Number: None

PATIENT
  Age: 33 Year
  Sex: Female
  Weight: 58 kg

DRUGS (1)
  1. VANCOMYCIN [Suspect]
     Active Substance: VANCOMYCIN
     Indication: Cellulitis
     Dosage: FREQUENCY : ONCE;?
     Route: 042
     Dates: start: 20220205, end: 20220205

REACTIONS (8)
  - Tachycardia [None]
  - Hypotension [None]
  - Pruritus [None]
  - Pruritus [None]
  - Urticaria [None]
  - Drug hypersensitivity [None]
  - Pulmonary embolism [None]
  - Vancomycin infusion reaction [None]

NARRATIVE: CASE EVENT DATE: 20220205
